FAERS Safety Report 13285674 (Version 1)
Quarter: 2017Q1

REPORT INFORMATION
  Report Type: Report from Study
  Country: GB (occurrence: GB)
  Receive Date: 20170302
  Receipt Date: 20170302
  Transmission Date: 20170428
  Serious: Yes (Hospitalization, Other)
  Sender: FDA-Public Use
  Company Number: GB-UCBSA-2016050255

PATIENT
  Age: 34 Year
  Sex: Female

DRUGS (1)
  1. CERTOLIZUMAB PEGOL PSA AUTOCLICKS [Suspect]
     Active Substance: CERTOLIZUMAB PEGOL
     Indication: PSORIATIC ARTHROPATHY
     Dosage: 400 MG, EV 2 WEEKS(QOW)
     Route: 058
     Dates: start: 20161209, end: 201701

REACTIONS (6)
  - Abortion spontaneous [Unknown]
  - Pregnancy [Unknown]
  - Somnolence [Unknown]
  - Fatigue [Unknown]
  - Injection site pain [Unknown]
  - Drug dose omission [None]

NARRATIVE: CASE EVENT DATE: 201612
